FAERS Safety Report 13895551 (Version 1)
Quarter: 2017Q3

REPORT INFORMATION
  Report Type: Spontaneous
  Country: US (occurrence: US)
  Receive Date: 20170823
  Receipt Date: 20170823
  Transmission Date: 20171127
  Serious: No
  Sender: FDA-Public Use
  Company Number: US-PFIZER INC-2017362851

PATIENT
  Age: 72 Year
  Sex: Female

DRUGS (2)
  1. XELJANZ XR [Suspect]
     Active Substance: TOFACITINIB CITRATE
     Dosage: 11 MG, UNK
  2. METHOTREXATE. [Suspect]
     Active Substance: METHOTREXATE
     Dosage: 2.5 MG, UNK

REACTIONS (13)
  - Red cell distribution width increased [Unknown]
  - Joint stiffness [Unknown]
  - Tenderness [Unknown]
  - Mean cell haemoglobin increased [Unknown]
  - Arthralgia [Unknown]
  - Blood glucose increased [Unknown]
  - Headache [Unknown]
  - Asthenia [Unknown]
  - Mean cell volume increased [Unknown]
  - Alanine aminotransferase increased [Unknown]
  - Joint swelling [Unknown]
  - Pain in extremity [Unknown]
  - Myalgia [Unknown]
